FAERS Safety Report 7910818-6 (Version None)
Quarter: 2011Q4

REPORT INFORMATION
  Report Type: 
  Country: None (occurrence: None)
  Receive Date: 20111114
  Receipt Date: 20111109
  Transmission Date: 20120403
  Serious: Yes (Other)
  Sender: FDA-Public Use
  Company Number: JP-BRISTOL-MYERS SQUIBB COMPANY-16207300

PATIENT
  Age: 75 Year
  Sex: Male

DRUGS (6)
  1. ORENCIA [Suspect]
     Indication: RHEUMATOID ARTHRITIS
     Dosage: ROUTE: IV DRIP OVER 30 MIN. ALSO TAKEN ON 27FEB,28MAR,27APR,25MAY,22JUN11.
     Route: 041
     Dates: start: 20110201
  2. METHOTREXATE [Suspect]
     Dates: start: 20090910
  3. SELBEX [Concomitant]
  4. FOLIC ACID [Concomitant]
  5. RABEPRAZOLE SODIUM [Concomitant]
  6. DICLOFENAC SODIUM [Concomitant]
     Indication: RHEUMATOID ARTHRITIS

REACTIONS (1)
  - SALIVARY GLAND CALCULUS [None]
